FAERS Safety Report 20866984 (Version 1)
Quarter: 2022Q2

REPORT INFORMATION
  Report Type: Spontaneous
  Country: SK (occurrence: SK)
  Receive Date: 20220524
  Receipt Date: 20220524
  Transmission Date: 20220721
  Serious: Yes (Other)
  Sender: FDA-Public Use
  Company Number: SK-PFIZER INC-202101465519

PATIENT
  Age: 72 Year
  Sex: Female

DRUGS (4)
  1. LORLATINIB [Suspect]
     Active Substance: LORLATINIB
     Indication: Non-small cell lung cancer
     Dosage: 100 MG, DAILY
     Route: 048
     Dates: start: 20211011
  2. NADROPARIN CALCIUM [Concomitant]
     Active Substance: NADROPARIN CALCIUM
     Dosage: 0.8 ML, DAILY
     Route: 058
  3. WARFARIN [Concomitant]
     Active Substance: WARFARIN
     Dosage: UNK
  4. EUTHYROX [Concomitant]
     Active Substance: LEVOTHYROXINE SODIUM
     Dosage: 150 UG DAILY (DURING WEEKEND 1.5 TBL)

REACTIONS (20)
  - Mental impairment [Recovered/Resolved]
  - Hypercholesterolaemia [Recovered/Resolved]
  - Hypertriglyceridaemia [Recovered/Resolved]
  - Deep vein thrombosis [Unknown]
  - Neuropathy peripheral [Unknown]
  - Weight increased [Unknown]
  - Diabetes mellitus [Unknown]
  - Visual impairment [Recovered/Resolved]
  - Muscular weakness [Recovered/Resolved]
  - Psychomotor skills impaired [Unknown]
  - Xanthoma [Unknown]
  - Oedema peripheral [Unknown]
  - Burning sensation [Unknown]
  - Paraesthesia [Unknown]
  - Fatigue [Unknown]
  - Eyelid oedema [Unknown]
  - Hyperglycaemia [Unknown]
  - Pain in extremity [Unknown]
  - Hypotension [Not Recovered/Not Resolved]
  - Back pain [Recovered/Resolved]

NARRATIVE: CASE EVENT DATE: 20211001
